FAERS Safety Report 4731084-9 (Version None)
Quarter: 2005Q3

REPORT INFORMATION
  Report Type: 
  Country: None (occurrence: None)
  Receive Date: 20050726
  Receipt Date: 20050118
  Transmission Date: 20060218
  Serious: Yes (Hospitalization)
  Sender: FDA-Public Use
  Company Number: 05FRA0040

PATIENT
  Age: 73 Year
  Sex: Female

DRUGS (5)
  1. AGGRASTAT [Suspect]
     Indication: ACUTE MYOCARDIAL INFARCTION
     Dosage: 168 ML/DAILY
     Dates: start: 20040929, end: 20040930
  2. HEPARIN [Suspect]
     Indication: ACUTE MYOCARDIAL INFARCTION
     Dosage: 6000 IU
     Dates: start: 20040929, end: 20040930
  3. ASPIRIN LYSINE(ACETYLSALICYLATE LYSINE) (75 MILLIGRAM, POWDER) [Suspect]
     Indication: ACUTE MYOCARDIAL INFARCTION
     Dosage: 75 MG
     Dates: start: 20040929
  4. CLOPIDOGREL BISULFATE [Suspect]
     Indication: ACUTE MYOCARDIAL INFARCTION
     Dosage: 1 DOSAGE FORM/DAILY
     Dates: start: 20040929
  5. ATENOLOL [Concomitant]

REACTIONS (2)
  - CATHETER SITE HAEMATOMA [None]
  - THROMBOCYTOPENIA [None]
